FAERS Safety Report 15964949 (Version 2)
Quarter: 2019Q1

REPORT INFORMATION
  Report Type: Spontaneous
  Country: IR (occurrence: IR)
  Receive Date: 20190215
  Receipt Date: 20190310
  Transmission Date: 20190418
  Serious: Yes (Life-Threatening, Hospitalization, Other)
  Sender: FDA-Public Use
  Company Number: IR-ACCORD-106835

PATIENT
  Age: 78 Year
  Sex: Male

DRUGS (4)
  1. ALLOPURINOL. [Suspect]
     Active Substance: ALLOPURINOL
     Indication: GOUT
     Dates: end: 2017
  2. INDOMETACIN [Concomitant]
     Active Substance: INDOMETHACIN
  3. GABAPENTIN. [Concomitant]
     Active Substance: GABAPENTIN
  4. CAPTOPRIL. [Concomitant]
     Active Substance: CAPTOPRIL

REACTIONS (2)
  - Meningitis [Recovering/Resolving]
  - Loss of consciousness [Unknown]

NARRATIVE: CASE EVENT DATE: 20170204
